FAERS Safety Report 25290852 (Version 1)
Quarter: 2025Q2

REPORT INFORMATION
  Report Type: Spontaneous
  Country: US (occurrence: US)
  Receive Date: 20250510
  Receipt Date: 20250510
  Transmission Date: 20250717
  Serious: No
  Sender: SANOFI AVENTIS
  Company Number: US-SA-2025SA116912

PATIENT
  Age: 70 Year
  Sex: Female

DRUGS (2)
  1. DUPIXENT [Suspect]
     Active Substance: DUPILUMAB
     Indication: Neurodermatitis
     Dosage: 300 MG, QOW
     Route: 058
  2. MAGNESIUM [Suspect]
     Active Substance: MAGNESIUM

REACTIONS (4)
  - Muscle spasms [Unknown]
  - Condition aggravated [Unknown]
  - Rash macular [Unknown]
  - Dry eye [Unknown]
